FAERS Safety Report 5132935-9 (Version None)
Quarter: 2006Q4

REPORT INFORMATION
  Report Type: 
  Country: None (occurrence: None)
  Receive Date: 20061017
  Receipt Date: 20061012
  Transmission Date: 20070319
  Serious: Yes (Hospitalization)
  Sender: FDA-Public Use
  Company Number: TCI2006A04048

PATIENT
  Age: 76 Year
  Sex: Male

DRUGS (14)
  1. LEUPROLIDE ACETATE [Suspect]
     Indication: PROSTATE CANCER
     Dosage: 3.75 MG (3.75 MG, 1 IN 28 D)
     Route: 058
     Dates: start: 20050722, end: 20050819
  2. LEUPROLIDE ACETATE [Suspect]
     Indication: PROSTATE CANCER
     Dosage: 3.75 MG (3.75 MG, 1 IN 28 D)
     Route: 058
     Dates: start: 20060207, end: 20060207
  3. LEUPROLIDE ACETATE [Suspect]
     Indication: PROSTATE CANCER
     Dosage: 3.75 MG (3.75 MG, 1 IN 28 D)
     Route: 058
     Dates: start: 20060502, end: 20060502
  4. LEUPROLIDE ACETATE [Suspect]
     Indication: PROSTATE CANCER
     Dosage: 3.75 MG (3.75 MG, 1 IN 28 D)
     Route: 058
     Dates: start: 20060704, end: 20060704
  5. LEUPROLIDE ACETATE [Suspect]
     Indication: PROSTATE CANCER
     Dosage: 3.75 MG (3.75 MG, 1 IN 28 D)
     Route: 058
     Dates: start: 20060905
  6. ZOLADEX [Suspect]
     Indication: PROSTATE CANCER
     Dosage: 3.6 MG (3.6 MG, 1 IN 28 D)
     Route: 058
     Dates: start: 20050520, end: 20050624
  7. ZOLADEX [Suspect]
     Indication: PROSTATE CANCER
     Dosage: 3.6 MG (3.6 MG, 1 IN 28 D)
     Route: 058
     Dates: start: 20050916, end: 20060110
  8. ZOLADEX [Suspect]
     Indication: PROSTATE CANCER
     Dosage: 3.6 MG (3.6 MG, 1 IN 28 D)
     Route: 058
     Dates: start: 20060307, end: 20060404
  9. ZOLADEX [Suspect]
     Indication: PROSTATE CANCER
     Dosage: 3.6 MG (3.6 MG, 1 IN 28 D)
     Route: 058
     Dates: start: 20060530, end: 20060530
  10. CHLORMADINONE ACETATE TAB [Suspect]
     Indication: PROSTATE CANCER
     Dosage: 100 MG (50 MG, 2 IN 1 D)
     Route: 048
     Dates: start: 20050723, end: 20050921
  11. CASODEX [Suspect]
     Indication: PROSTATE CANCER
     Dosage: 80 MG (80 MG, 1 IN 1 D)
     Route: 048
     Dates: start: 20050503, end: 20050722
  12. LIPITOR [Concomitant]
  13. AMARYL (GLIMEPIRIDE) TABLETS [Concomitant]
  14. MEDET (METFORMIN HYDROCHLORIDE) TABLETS [Concomitant]

REACTIONS (4)
  - BRAIN OEDEMA [None]
  - CEREBRAL HAEMORRHAGE [None]
  - INTRACRANIAL VENOUS SINUS THROMBOSIS [None]
  - MUSCULAR WEAKNESS [None]
